FAERS Safety Report 4825630-4 (Version None)
Quarter: 2005Q4

REPORT INFORMATION
  Report Type: 
  Country: None (occurrence: None)
  Receive Date: 20051111
  Receipt Date: 20051102
  Transmission Date: 20060501
  Serious: Yes (Disabling)
  Sender: FDA-Public Use
  Company Number: SG-ABBOTT-05P-141-0316539-00

PATIENT
  Sex: Female
  Weight: 78.5 kg

DRUGS (1)
  1. REDUCTIL 15MG [Suspect]
     Indication: WEIGHT CONTROL
     Route: 048
     Dates: start: 20050705, end: 20050905

REACTIONS (1)
  - PSYCHOTIC DISORDER [None]
